FAERS Safety Report 7389514-2 (Version None)
Quarter: 2011Q2

REPORT INFORMATION
  Report Type: 
  Country: None (occurrence: None)
  Receive Date: 20110401
  Receipt Date: 20110321
  Transmission Date: 20111010
  Serious: Yes (Hospitalization, Other)
  Sender: FDA-Public Use
  Company Number: PHHY2011DE19568

PATIENT
  Age: 36 Year
  Sex: Male

DRUGS (7)
  1. MIVACRON [Interacting]
     Indication: GENERAL ANAESTHESIA
  2. ULTIVA [Interacting]
     Indication: GENERAL ANAESTHESIA
  3. DESFLURANE [Interacting]
     Indication: GENERAL ANAESTHESIA
  4. PROPOFOL [Interacting]
     Indication: GENERAL ANAESTHESIA
  5. DAFIRO HCT [Suspect]
     Dosage: AMLODIPIN 10MG, VALSARTAN 320MG, HYDROCHLOROTHIAZIDE 25MG PER DAY
     Route: 048
     Dates: start: 20100701, end: 20110106
  6. TRANXILIUM [Suspect]
     Indication: GENERAL ANAESTHESIA
  7. CATAPRESAN [Interacting]

REACTIONS (10)
  - RESPIRATORY ARREST [None]
  - GAIT DISTURBANCE [None]
  - SOMNOLENCE [None]
  - INSOMNIA [None]
  - ANAL FISTULA [None]
  - SLEEP APNOEA SYNDROME [None]
  - DIZZINESS [None]
  - DYSURIA [None]
  - ANTICHOLINERGIC SYNDROME [None]
  - DRUG INTERACTION [None]
